FAERS Safety Report 19847123 (Version 1)
Quarter: 2021Q3

REPORT INFORMATION
  Report Type: Spontaneous
  Country: BR (occurrence: BR)
  Receive Date: 20210917
  Receipt Date: 20210917
  Transmission Date: 20211014
  Serious: Yes (Other)
  Sender: FDA-Public Use
  Company Number: BR-EXELIXIS-CABO-21043667

PATIENT
  Sex: Male

DRUGS (3)
  1. CABOMETYX [Suspect]
     Active Substance: CABOZANTINIB S-MALATE
     Dosage: 140 MG, QD (1X60 MG, 1X40 + 2X20 MG)
     Dates: start: 202101
  2. CABOMETYX [Suspect]
     Active Substance: CABOZANTINIB S-MALATE
     Indication: MEDULLARY THYROID CANCER
     Dosage: 140 MG, QD (1X60 MG, 1X40 + 2X20 MG)
     Dates: start: 201908
  3. CABOMETYX [Suspect]
     Active Substance: CABOZANTINIB S-MALATE
     Indication: MALIGNANT NEOPLASM OF SPINAL CORD
     Dosage: 80 MG, QD

REACTIONS (9)
  - Gastrointestinal infection [Recovered/Resolved]
  - Suspected counterfeit product [Unknown]
  - Hair colour changes [Recovered/Resolved]
  - Nausea [Recovered/Resolved]
  - Palmar-plantar erythrodysaesthesia syndrome [Recovered/Resolved]
  - Overdose [Unknown]
  - Fatigue [Recovered/Resolved]
  - Off label use [Unknown]
  - Acne [Recovered/Resolved]

NARRATIVE: CASE EVENT DATE: 201808
